FAERS Safety Report 7832294-4 (Version None)
Quarter: 2011Q4

REPORT INFORMATION
  Report Type: 
  Country: None (occurrence: None)
  Receive Date: 20111022
  Receipt Date: 20111020
  Transmission Date: 20120403
  Serious: Yes (Hospitalization)
  Sender: FDA-Public Use
  Company Number: JP-BAYER-2011-101834

PATIENT
  Age: 83 Year
  Sex: Male

DRUGS (1)
  1. NEXAVAR [Suspect]
     Indication: HEPATIC NEOPLASM MALIGNANT
     Dosage: 200 MG, QD
     Route: 048
     Dates: start: 20111005, end: 20111014

REACTIONS (2)
  - HEPATIC ENCEPHALOPATHY [None]
  - DECREASED APPETITE [None]
